FAERS Safety Report 17407641 (Version 1)
Quarter: 2020Q1

REPORT INFORMATION
  Report Type: Spontaneous
  Country: US (occurrence: IE)
  Receive Date: 20200212
  Receipt Date: 20200212
  Transmission Date: 20200409
  Serious: Yes (Other)
  Sender: FDA-Public Use
  Company Number: NVSC2020IE037310

PATIENT
  Sex: Male

DRUGS (1)
  1. ADALIMUMAB [Suspect]
     Active Substance: ADALIMUMAB
     Indication: CROHN^S DISEASE
     Dosage: UNK
     Route: 065

REACTIONS (4)
  - Pneumonia fungal [Recovered/Resolved]
  - Coccidioidomycosis [Recovered/Resolved]
  - Cell-mediated immune deficiency [Unknown]
  - Cellulitis staphylococcal [Recovered/Resolved]
